FAERS Safety Report 8125824 (Version 5)
Quarter: 2014Q1

REPORT INFORMATION
  Report Type: Spontaneous
  Country: US (occurrence: US)
  Receive Date: 20110908
  Receipt Date: 20140320
  Transmission Date: 20141002
  Serious: Yes (Hospitalization, Other)
  Sender: FDA-Public Use
  Company Number: US-BAYER-2011-082635

PATIENT
  Age: 25 Year
  Sex: Female
  Weight: 65.76 kg

DRUGS (7)
  1. YAZ [Suspect]
     Dosage: UNK
     Dates: start: 200809, end: 200903
  2. YAZ [Suspect]
     Route: 048
  3. METRONIDAZOLE [Concomitant]
  4. DESOGESTREL [Concomitant]
  5. DESOGESTREL W/ETHINYLESTRADIOL [Concomitant]
  6. TYLENOL [Concomitant]
  7. NEXIUM [Concomitant]

REACTIONS (3)
  - Cholecystitis chronic [None]
  - Cholecystectomy [None]
  - Gastroenteritis [None]
